FAERS Safety Report 23949311 (Version 3)
Quarter: 2025Q2

REPORT INFORMATION
  Report Type: Report from Study
  Country: US (occurrence: US)
  Receive Date: 20240607
  Receipt Date: 20250619
  Transmission Date: 20250717
  Serious: Yes (Other)
  Sender: AUROBINDO
  Company Number: US-MLMSERVICE-20240522-PI072259-00327-1

PATIENT
  Age: 31 Year
  Sex: Female

DRUGS (1)
  1. DIVALPROEX SODIUM [Suspect]
     Active Substance: DIVALPROEX SODIUM
     Indication: Bipolar disorder
     Route: 065

REACTIONS (2)
  - Central sleep apnoea syndrome [Recovered/Resolved]
  - Condition aggravated [Recovering/Resolving]
